FAERS Safety Report 5496485-2 (Version None)
Quarter: 2007Q4

REPORT INFORMATION
  Report Type: 
  Country: None (occurrence: None)
  Receive Date: 20071025
  Receipt Date: 20071012
  Transmission Date: 20080405
  Serious: Yes (Hospitalization, Other)
  Sender: FDA-Public Use
  Company Number: NL-ELI_LILLY_AND_COMPANY-NL200709006009

PATIENT
  Sex: Male

DRUGS (12)
  1. ALIMTA [Suspect]
     Indication: MESOTHELIOMA MALIGNANT
  2. CARBOPLATIN [Concomitant]
     Indication: MESOTHELIOMA
     Dosage: 560 MG, UNKNOWN
     Dates: start: 20070914
  3. DEXAMETHASON /00016001/ [Concomitant]
     Indication: PREMEDICATION
     Dosage: 4 MG, 2/D, DAY 0, 1 AND 2 OF CHEMO
     Dates: start: 20070913, end: 20070915
  4. FOLIC ACID [Concomitant]
     Indication: PREMEDICATION
     Dosage: 1 MG, DAILY (1/D)
     Route: 048
  5. VITAMIN B-12 [Concomitant]
     Indication: PREMEDICATION
     Dosage: 1000 UG, UNKNOWN
  6. PARACETAMOL [Concomitant]
     Indication: PAIN
     Dosage: 6 D/F, AS NEEDED
  7. METFORMIN [Concomitant]
     Indication: DIABETES MELLITUS
     Dosage: 1700 MG, AS NEEDED
  8. AMARYL [Concomitant]
     Indication: DIABETES MELLITUS
     Dosage: 1 MG, DAILY (1/D)
  9. INSULATARD /00030504/ [Concomitant]
     Dosage: UNK, UNKNOWN
  10. ZOFRAN [Concomitant]
     Dosage: 16 MG, AS NEEDED
  11. PRIMPERAN /00041901/ [Concomitant]
     Dosage: 40 MG, AS NEEDED
  12. AUGMENTIN '125' [Concomitant]
     Dosage: UNK, UNKNOWN
     Dates: end: 20071002

REACTIONS (2)
  - HAEMOGLOBIN DECREASED [None]
  - POLYARTHRITIS [None]
